FAERS Safety Report 12678191 (Version 3)
Quarter: 2016Q4

REPORT INFORMATION
  Report Type: Report from Study
  Country: US (occurrence: US)
  Receive Date: 20160823
  Receipt Date: 20161023
  Transmission Date: 20170207
  Serious: Yes (Other)
  Sender: FDA-Public Use
  Company Number: US-TAKEDA-2016TUS014710

PATIENT
  Sex: Female
  Weight: 64.85 kg

DRUGS (4)
  1. VORTIOXETINE [Suspect]
     Active Substance: VORTIOXETINE
     Indication: ANXIETY
  2. TAMIFLU [Concomitant]
     Active Substance: OSELTAMIVIR PHOSPHATE
     Dosage: UNK
  3. VORTIOXETINE [Suspect]
     Active Substance: VORTIOXETINE
     Indication: DEPRESSION
     Dosage: 10 MG, QD
     Route: 048
     Dates: start: 201507, end: 201605
  4. VORTIOXETINE [Suspect]
     Active Substance: VORTIOXETINE
     Indication: GRIEF REACTION

REACTIONS (6)
  - Asthenia [Recovering/Resolving]
  - Serotonin syndrome [Recovering/Resolving]
  - Flat affect [Recovering/Resolving]
  - Impaired work ability [Recovering/Resolving]
  - Fatigue [Recovering/Resolving]
  - Amnesia [Recovering/Resolving]
